FAERS Safety Report 4838018-7 (Version None)
Quarter: 2005Q4

REPORT INFORMATION
  Report Type: 
  Country: None (occurrence: None)
  Receive Date: 20051123
  Receipt Date: 20051111
  Transmission Date: 20060501
  Serious: Yes (Other)
  Sender: FDA-Public Use
  Company Number: 2005BH002257

PATIENT
  Age: 35 Year
  Sex: Male
  Weight: 65 kg

DRUGS (3)
  1. EXTRANEAL [Suspect]
     Dosage: 2000 ML IP
     Route: 033
     Dates: start: 20050721
  2. BLOOD GLUCOSE MONITOR [Concomitant]
  3. DIANEAL [Concomitant]

REACTIONS (4)
  - CARDIAC DISORDER [None]
  - HYPOGLYCAEMIA [None]
  - MEMORY IMPAIRMENT [None]
  - TREATMENT NONCOMPLIANCE [None]
